FAERS Safety Report 5293648-6 (Version None)
Quarter: 2007Q2

REPORT INFORMATION
  Report Type: 
  Country: None (occurrence: None)
  Receive Date: 20070411
  Receipt Date: 20070330
  Transmission Date: 20071010
  Serious: Yes (Life-Threatening, Hospitalization)
  Sender: FDA-Public Use
  Company Number: DE-ELI_LILLY_AND_COMPANY-DE200611005130

PATIENT
  Age: 14 Year
  Sex: Male
  Weight: 61 kg

DRUGS (5)
  1. STRATTERA [Suspect]
     Indication: ATTENTION DEFICIT/HYPERACTIVITY DISORDER
     Dosage: 18 MG, DAILY (1/D)
     Route: 048
     Dates: start: 20050331, end: 20051005
  2. STRATTERA [Suspect]
     Route: 048
     Dates: start: 20040122
  3. STRATTERA [Suspect]
     Dosage: 25 MG, DAILY (1/D)
     Route: 048
     Dates: start: 20051006, end: 20060501
  4. STRATTERA [Suspect]
     Dosage: 18 MG, DAILY (1/D)
     Route: 048
     Dates: start: 20060502, end: 20060918
  5. STRATTERA [Suspect]
     Dosage: 10 MG, DAILY (1/D)
     Route: 048
     Dates: start: 20060919

REACTIONS (2)
  - CONSTRICTED AFFECT [None]
  - PNEUMOTHORAX [None]
